FAERS Safety Report 9337527 (Version 3)
Quarter: 2013Q3

REPORT INFORMATION
  Report Type: Spontaneous
  Country: US (occurrence: US)
  Receive Date: 20130607
  Receipt Date: 20130710
  Transmission Date: 20140515
  Serious: Yes (Other)
  Sender: FDA-Public Use
  Company Number: US-UCBSA-087285

PATIENT
  Age: 58 Year
  Sex: Male

DRUGS (14)
  1. VIMPAT [Suspect]
     Indication: CONVULSION
     Dates: start: 201106
  2. CIPRO [Suspect]
     Indication: INFECTION
     Route: 048
     Dates: start: 2011
  3. KEPPRA [Concomitant]
     Dates: start: 2012
  4. KEPPRA [Concomitant]
     Dates: start: 20130513
  5. PREDNISONE [Concomitant]
     Dates: end: 201303
  6. PROGRAF [Concomitant]
     Dosage: UNKNOWN DOSE
  7. PROGRAF [Concomitant]
     Dosage: UNKNOWN DOSE
  8. ATENOLOL [Concomitant]
     Dosage: DAILY DOSE: 100 MG
     Route: 048
  9. NIFEDIPINE [Concomitant]
     Dosage: 60 MG ER 24 HR DAILY
     Route: 048
  10. CATAPRES [Concomitant]
     Route: 048
  11. PROTONIX [Concomitant]
     Dosage: 40 MG DR
     Route: 048
  12. LEVEMIR FLEXPEN [Concomitant]
     Dosage: 100 UNIT/ML SOLUTION
     Route: 058
  13. INSULIN INJECTION [Concomitant]
     Dosage: SPECIFIC DOSE UNKNOWN
  14. URSO FORTE [Concomitant]
     Dosage: DOSE: 500 MG
     Route: 048

REACTIONS (1)
  - Renal disorder [Not Recovered/Not Resolved]
